FAERS Safety Report 5223285-0 (Version None)
Quarter: 2007Q1

REPORT INFORMATION
  Report Type: 
  Country: None (occurrence: None)
  Receive Date: 20070124
  Receipt Date: 20070113
  Transmission Date: 20070707
  Serious: No
  Sender: FDA-Public Use
  Company Number: 234361

PATIENT
  Age: 88 Year
  Sex: Male

DRUGS (1)
  1. LUCENTIS [Suspect]
     Indication: MACULAR DEGENERATION
     Dosage: 0.5 MG, 1/MONTH, INTRAVITREAL
     Dates: start: 20061013

REACTIONS (1)
  - VISUAL DISTURBANCE [None]
